FAERS Safety Report 19898289 (Version 1)
Quarter: 2021Q3

REPORT INFORMATION
  Report Type: Spontaneous
  Country: PL (occurrence: PL)
  Receive Date: 20210930
  Receipt Date: 20210930
  Transmission Date: 20211014
  Serious: Yes (Other)
  Sender: FDA-Public Use
  Company Number: PL-NOVOPROD-850345

PATIENT

DRUGS (5)
  1. INSULATARD HM [Suspect]
     Active Substance: INSULIN HUMAN
     Dosage: UNK BID (DOSE INCREASED)
     Route: 064
  2. INSULATARD HM [Suspect]
     Active Substance: INSULIN HUMAN
     Indication: GESTATIONAL DIABETES
     Dosage: UNK QD
     Route: 064
  3. INSULIN ASPART [Suspect]
     Active Substance: INSULIN ASPART
     Dosage: UNK (INJECTED BEFORE EACH MEAL)
     Route: 064
  4. INSULIN ASPART [Suspect]
     Active Substance: INSULIN ASPART
     Indication: GESTATIONAL DIABETES
     Dosage: UNK (BEFORE AN EVENING MEAL)
     Route: 064
  5. METFORMINE [METFORMIN] [Concomitant]
     Active Substance: METFORMIN HYDROCHLORIDE
     Indication: GESTATIONAL DIABETES
     Dosage: UNK
     Route: 064

REACTIONS (2)
  - Foetal growth abnormality [Unknown]
  - Foetal exposure during pregnancy [Not Recovered/Not Resolved]
